FAERS Safety Report 21403905 (Version 8)
Quarter: 2023Q2

REPORT INFORMATION
  Report Type: Report from Study
  Country: PL (occurrence: PL)
  Receive Date: 20221003
  Receipt Date: 20230426
  Transmission Date: 20230721
  Serious: Yes (Life-Threatening)
  Sender: FDA-Public Use
  Company Number: PL-NOVARTISPH-NVSC2022PL220941

PATIENT
  Age: 38 Year
  Sex: Female
  Weight: 102 kg

DRUGS (8)
  1. SECUKINUMAB [Suspect]
     Active Substance: SECUKINUMAB
     Indication: Hidradenitis
     Dosage: 300 MG, Q2W
     Route: 058
     Dates: start: 20200902
  2. COSENTYX [Suspect]
     Active Substance: SECUKINUMAB
     Indication: Hidradenitis
     Dosage: UNK
     Route: 058
  3. DIENOGEST\ESTRADIOL VALERATE [Concomitant]
     Active Substance: DIENOGEST\ESTRADIOL VALERATE
     Indication: General physical condition
     Dosage: UNK
     Route: 065
     Dates: start: 2008
  4. DIENOGEST\ESTRADIOL VALERATE [Concomitant]
     Active Substance: DIENOGEST\ESTRADIOL VALERATE
     Indication: Oral contraception
  5. NIMESULIDE [Concomitant]
     Active Substance: NIMESULIDE
     Indication: Sciatica
     Dosage: UNK
     Route: 065
     Dates: start: 20220505
  6. NEUROVIT [Concomitant]
     Indication: Sciatica
     Dosage: UNK
     Route: 065
     Dates: start: 20220505
  7. ACETAMINOPHEN\TRAMADOL HYDROCHLORIDE [Concomitant]
     Active Substance: ACETAMINOPHEN\TRAMADOL HYDROCHLORIDE
     Indication: Sciatica
     Dosage: UNK
     Route: 065
     Dates: start: 20220511
  8. DICLOFENAC SODIUM [Concomitant]
     Active Substance: DICLOFENAC SODIUM
     Indication: Sciatica
     Dosage: UNK
     Route: 065
     Dates: start: 20220511

REACTIONS (2)
  - Breast cancer metastatic [Not Recovered/Not Resolved]
  - Invasive breast carcinoma [Not Recovered/Not Resolved]

NARRATIVE: CASE EVENT DATE: 20220514
